FAERS Safety Report 22749890 (Version 7)
Quarter: 2023Q4

REPORT INFORMATION
  Report Type: Report from Study
  Country: CO (occurrence: CO)
  Receive Date: 20230726
  Receipt Date: 20231006
  Transmission Date: 20240109
  Serious: Yes (Other)
  Sender: FDA-Public Use
  Company Number: CO-IPSEN Group, Research and Development-2023-16993

PATIENT
  Age: 42 Year
  Sex: Female
  Weight: 58 kg

DRUGS (11)
  1. OPDIVO [Suspect]
     Active Substance: NIVOLUMAB
     Indication: Renal cell carcinoma
     Dosage: 480 MG
     Route: 042
     Dates: start: 20230628
  2. OPDIVO [Suspect]
     Active Substance: NIVOLUMAB
     Dosage: 174 MG/ML
     Route: 042
     Dates: start: 20230727
  3. OPDIVO [Suspect]
     Active Substance: NIVOLUMAB
     Dates: start: 20230922
  4. CABOMETYX [Suspect]
     Active Substance: CABOZANTINIB S-MALATE
     Indication: Renal cell carcinoma
     Dosage: 60 MG, QD (1 TABLET EVERY 24 HOURS)
     Route: 048
     Dates: start: 20230602
  5. CABOMETYX [Suspect]
     Active Substance: CABOZANTINIB S-MALATE
     Dosage: 40 MG, (1 TABLET EVERY 24 HOURS)
     Route: 048
     Dates: start: 20230825, end: 20230904
  6. LOSARTAN AND HYDROCHLOROTHIAZIDE [Concomitant]
     Active Substance: HYDROCHLOROTHIAZIDE\LOSARTAN POTASSIUM
     Indication: Hypertension
     Dosage: 50 MG, BID
     Route: 048
     Dates: start: 20191201
  7. INSULIN GLULISINE [Concomitant]
     Active Substance: INSULIN GLULISINE
     Indication: Diabetes mellitus
     Dosage: 100 IU/M L 8 IU BEFORE BREAKFAST 4 IU BEFORE DINNER
     Route: 058
     Dates: start: 20030201
  8. LINAGLIPTIN [Concomitant]
     Active Substance: LINAGLIPTIN
     Indication: Diabetes mellitus
     Route: 058
     Dates: start: 20230628
  9. ATORVASTATIN [Concomitant]
     Active Substance: ATORVASTATIN
     Indication: Blood cholesterol
     Route: 048
     Dates: start: 20191201
  10. LINAGLIPTIN [Concomitant]
     Active Substance: LINAGLIPTIN
     Indication: Diabetes mellitus
     Dosage: INSULIN TRAYENTA LINAGLIPTIN
     Route: 058
     Dates: start: 20230628
  11. PREDNISOLONE [Concomitant]
     Active Substance: PREDNISOLONE
     Indication: Product used for unknown indication
     Route: 048

REACTIONS (7)
  - Nail bed bleeding [Not Recovered/Not Resolved]
  - Off label use [Unknown]
  - Hyperglycaemia [Not Recovered/Not Resolved]
  - Diarrhoea [Not Recovered/Not Resolved]
  - Pain in extremity [Not Recovered/Not Resolved]
  - Arthralgia [Not Recovered/Not Resolved]
  - Transaminases abnormal [Recovered/Resolved]

NARRATIVE: CASE EVENT DATE: 20230703
